FAERS Safety Report 6491244-6 (Version None)
Quarter: 2009Q4

REPORT INFORMATION
  Report Type: 
  Country: None (occurrence: None)
  Receive Date: 20091211
  Receipt Date: 20091202
  Transmission Date: 20100525
  Serious: Yes (Other)
  Sender: FDA-Public Use
  Company Number: PHHY2009JP53724

PATIENT
  Age: 43 Year
  Sex: Male

DRUGS (1)
  1. VOLTAREN [Suspect]
     Indication: HEADACHE
     Dosage: 75 MG PER DAY
     Route: 048

REACTIONS (1)
  - MIGRAINE [None]
